FAERS Safety Report 6981364-1 (Version None)
Quarter: 2010Q3

REPORT INFORMATION
  Report Type: 
  Country: None (occurrence: None)
  Receive Date: 20100909
  Receipt Date: 20100902
  Transmission Date: 20110219
  Serious: Yes (Hospitalization, Other)
  Sender: FDA-Public Use
  Company Number: 20109178

PATIENT
  Sex: Male

DRUGS (1)
  1. LIORESAL [Suspect]
     Indication: MUSCLE SPASTICITY
     Dosage: MCG, DAILY, INTRATHECAL
     Route: 037

REACTIONS (6)
  - BLOOD PRESSURE FLUCTUATION [None]
  - DEVICE OCCLUSION [None]
  - DRUG WITHDRAWAL SYNDROME [None]
  - IATROGENIC INJURY [None]
  - MUSCLE SPASTICITY [None]
  - UNRESPONSIVE TO STIMULI [None]
